FAERS Safety Report 18731299 (Version 2)
Quarter: 2021Q1

REPORT INFORMATION
  Report Type: Spontaneous
  Country: CN (occurrence: CN)
  Receive Date: 20210112
  Receipt Date: 20210125
  Transmission Date: 20210419
  Serious: Yes (Hospitalization, Other)
  Sender: FDA-Public Use
  Company Number: CN-GLAXOSMITHKLINE-CN2021APC000783

PATIENT
  Sex: Female

DRUGS (2)
  1. SINGULAIR [Suspect]
     Active Substance: MONTELUKAST SODIUM
     Indication: PRODUCT USED FOR UNKNOWN INDICATION
     Dosage: UNK
  2. SERETIDE [Suspect]
     Active Substance: FLUTICASONE PROPIONATE\SALMETEROL XINAFOATE
     Indication: ASTHMA
     Dosage: UNK,50/250 MCG
     Route: 055
     Dates: start: 2006

REACTIONS (11)
  - Asthma [Recovered/Resolved]
  - Nasal dryness [Not Recovered/Not Resolved]
  - Seizure [Recovered/Resolved]
  - Dry mouth [Not Recovered/Not Resolved]
  - Mouth ulceration [Recovered/Resolved]
  - Cough [Recovered/Resolved]
  - Hyperparathyroidism [Not Recovered/Not Resolved]
  - Blood pressure increased [Recovered/Resolved]
  - Breath odour [Unknown]
  - Pulmonary function test decreased [Unknown]
  - Thyroid mass [Not Recovered/Not Resolved]

NARRATIVE: CASE EVENT DATE: 2019
